FAERS Safety Report 19182556 (Version 2)
Quarter: 2021Q2

REPORT INFORMATION
  Report Type: Other
  Country: US (occurrence: US)
  Receive Date: 20210427
  Receipt Date: 20210527
  Transmission Date: 20210717
  Serious: No
  Sender: FDA-Public Use
  Company Number: US-NEUROCRINE BIOSCIENCES INC.-2021NBI01889

PATIENT

DRUGS (8)
  1. METOPROLOL. [Concomitant]
     Active Substance: METOPROLOL
     Dosage: UNK
  2. RISPERDAL [Concomitant]
     Active Substance: RISPERIDONE
     Dosage: UNK
  3. VENLAFAXINE [Concomitant]
     Active Substance: VENLAFAXINE HYDROCHLORIDE
     Dosage: 75 MILLIGRAM
     Route: 048
     Dates: start: 20200317
  4. DIAZEPAM. [Concomitant]
     Active Substance: DIAZEPAM
     Indication: ANXIETY
     Dosage: 2 MILLIGRAM, BID/ PRN
     Route: 048
  5. INGREZZA [Suspect]
     Active Substance: VALBENAZINE
     Indication: TARDIVE DYSKINESIA
     Dosage: 40 MILLIGRAM, QD
     Route: 048
     Dates: start: 20191130
  6. RISPERIDONE. [Concomitant]
     Active Substance: RISPERIDONE
     Indication: PSYCHOTIC DISORDER
     Dosage: 0.5 MILLIGRAM, QD
     Route: 048
  7. WELLBUTRIN [Concomitant]
     Active Substance: BUPROPION HYDROCHLORIDE
     Dosage: UNK
  8. VENLAFAXINE [Concomitant]
     Active Substance: VENLAFAXINE HYDROCHLORIDE
     Dosage: 150 MILLIGRAM
     Route: 048

REACTIONS (1)
  - Depression [Recovered/Resolved]
